FAERS Safety Report 25624282 (Version 1)
Quarter: 2025Q3

REPORT INFORMATION
  Report Type: Report from Study
  Country: US (occurrence: US)
  Receive Date: 20250730
  Receipt Date: 20250730
  Transmission Date: 20251021
  Serious: No
  Sender: MALLINCKRODT
  Company Number: US-MALLINCKRODT-MNK202401818

PATIENT
  Age: 73 Year
  Sex: Female
  Weight: 197 kg

DRUGS (9)
  1. CORTICOTROPIN [Suspect]
     Active Substance: CORTICOTROPIN
     Indication: Rheumatoid arthritis
     Route: 058
     Dates: start: 20240310, end: 20240315
  2. CORTICOTROPIN [Suspect]
     Active Substance: CORTICOTROPIN
     Dates: start: 202403
  3. CORTICOTROPIN [Suspect]
     Active Substance: CORTICOTROPIN
     Dosage: 80 UNITS
     Dates: start: 2025
  4. PREDNISONE [Suspect]
     Active Substance: PREDNISONE
     Indication: Product used for unknown indication
     Dates: start: 20240312, end: 2024
  5. PREDNISONE [Suspect]
     Active Substance: PREDNISONE
     Dates: start: 20240310, end: 202403
  6. PREDNISONE [Suspect]
     Active Substance: PREDNISONE
     Dates: start: 2024
  7. AZATHIOPRINE [Concomitant]
     Active Substance: AZATHIOPRINE
  8. OZEMPIC [Concomitant]
     Active Substance: SEMAGLUTIDE
  9. RINVOQ [Concomitant]
     Active Substance: UPADACITINIB

REACTIONS (6)
  - Eye pain [Not Recovered/Not Resolved]
  - Ocular hyperaemia [Not Recovered/Not Resolved]
  - Abdominal discomfort [Unknown]
  - Weight increased [Unknown]
  - Product storage error [Unknown]
  - Therapeutic response shortened [Unknown]

NARRATIVE: CASE EVENT DATE: 20240301
